FAERS Safety Report 6892018-4 (Version None)
Quarter: 2010Q3

REPORT INFORMATION
  Report Type: 
  Country: None (occurrence: None)
  Receive Date: 20100731
  Receipt Date: 20080114
  Transmission Date: 20110219
  Serious: No
  Sender: FDA-Public Use
  Company Number: US-PFIZER INC-2007106477

PATIENT
  Age: 79 Year
  Sex: Female

DRUGS (4)
  1. NORVASC [Suspect]
     Indication: HYPERTENSION
  2. WARFARIN SODIUM [Concomitant]
  3. XANAX [Concomitant]
  4. METOPROLOL TARTRATE [Concomitant]

REACTIONS (3)
  - BLOOD PRESSURE INADEQUATELY CONTROLLED [None]
  - EXPIRED DRUG ADMINISTERED [None]
  - PULSE ABNORMAL [None]
